FAERS Safety Report 4757221-8 (Version None)
Quarter: 2005Q3

REPORT INFORMATION
  Report Type: 
  Country: None (occurrence: None)
  Receive Date: 20050831
  Receipt Date: 20050511
  Transmission Date: 20060218
  Serious: Yes (Hospitalization, Other)
  Sender: FDA-Public Use
  Company Number: US-ABBOTT-05P-163-0300245-00

PATIENT
  Sex: Female
  Weight: 39.044 kg

DRUGS (7)
  1. HUMIRA [Suspect]
     Indication: RHEUMATOID ARTHRITIS
     Route: 058
     Dates: start: 20020101, end: 20050501
  2. PREDNISONE [Concomitant]
     Indication: RHEUMATOID ARTHRITIS
     Route: 048
     Dates: start: 20050515
  3. ESOMEPRAZOLE [Concomitant]
     Indication: GASTRIC DISORDER
     Route: 048
  4. LEVOTHYROXINE SODIUM [Concomitant]
     Indication: BLOOD THYROID STIMULATING HORMONE DECREASED
     Route: 048
  5. BENICAR [Concomitant]
     Indication: BLOOD PRESSURE INCREASED
     Route: 048
  6. MELOXICAM [Concomitant]
     Indication: RHEUMATOID ARTHRITIS
     Route: 048
  7. ASPIRIN [Concomitant]
     Indication: PROPHYLAXIS
     Route: 048

REACTIONS (16)
  - ASTHENIA [None]
  - BRONCHITIS [None]
  - DECUBITUS ULCER [None]
  - DEHYDRATION [None]
  - DIARRHOEA [None]
  - EAR INFECTION [None]
  - FALL [None]
  - HIP FRACTURE [None]
  - KIDNEY INFECTION [None]
  - MOBILITY DECREASED [None]
  - NAUSEA [None]
  - ORAL PAIN [None]
  - PAIN [None]
  - PULMONARY OEDEMA [None]
  - RESPIRATORY TRACT INFECTION [None]
  - WEIGHT DECREASED [None]
